FAERS Safety Report 4534125-7 (Version None)
Quarter: 2004Q4

REPORT INFORMATION
  Report Type: 
  Country: None (occurrence: None)
  Receive Date: 20041221
  Receipt Date: 20041221
  Transmission Date: 20050328
  Serious: Yes (Other)
  Sender: FDA-Public Use
  Company Number: None

PATIENT
  Age: 91 Year
  Sex: Female
  Weight: 57.1532 kg

DRUGS (1)
  1. PROCARDIA [Suspect]
     Indication: HYPERTENSION
     Dosage: 60 G ONCE DAILY

REACTIONS (2)
  - NAUSEA [None]
  - PALPITATIONS [None]
